FAERS Safety Report 18368753 (Version 1)
Quarter: 2020Q4

REPORT INFORMATION
  Report Type: Spontaneous
  Country: IN (occurrence: IN)
  Receive Date: 20201010
  Receipt Date: 20201010
  Transmission Date: 20210114
  Serious: Yes (Hospitalization, Other)
  Sender: FDA-Public Use
  Company Number: IN-LUPIN PHARMACEUTICALS INC.-2020-07016

PATIENT
  Age: 4 Year
  Sex: Male

DRUGS (4)
  1. PHENOBARBITONE [PHENOBARBITAL] [Interacting]
     Active Substance: PHENOBARBITAL
     Indication: SEIZURE
  2. LAMOTRIGINE. [Suspect]
     Active Substance: LAMOTRIGINE
     Indication: SEIZURE
     Dosage: 12.5 MILLIGRAM, QD, DIVIDED INTO TWO DOSES DURING WEEK 1, 2, 3 AND 4
     Route: 065
  3. PHENOBARBITONE [PHENOBARBITAL] [Interacting]
     Active Substance: PHENOBARBITAL
     Indication: CEREBRAL PALSY
     Dosage: UNK
     Route: 065
  4. LAMOTRIGINE. [Interacting]
     Active Substance: LAMOTRIGINE
     Indication: CEREBRAL PALSY

REACTIONS (3)
  - Drug interaction [Unknown]
  - Drug titration error [Unknown]
  - Drug reaction with eosinophilia and systemic symptoms [Recovering/Resolving]
